FAERS Safety Report 18957144 (Version 1)
Quarter: 2021Q1

REPORT INFORMATION
  Report Type: Report from Study
  Country: None (occurrence: BE)
  Receive Date: 20210302
  Receipt Date: 20210302
  Transmission Date: 20210420
  Serious: Yes (Hospitalization)
  Sender: FDA-Public Use
  Company Number: BE-ABBVIE-21K-013-3795441-00

PATIENT
  Age: 90 Year
  Sex: Female
  Weight: 50 kg

DRUGS (11)
  1. OPTICALM LIPOMYST [Concomitant]
     Indication: PRODUCT USED FOR UNKNOWN INDICATION
     Dosage: FORM OF ADMINISTRATION: DROPS 4 TO 5 TIMES PER DAY
  2. OPTICALM PLUS [Concomitant]
     Indication: PRODUCT USED FOR UNKNOWN INDICATION
     Dosage: FORM OF ADMINISTRATION: EYE SPRAY;  UNIT DOSE: 1 SPRAY ON BOTH CLOSE EYELIDS
  3. PANTOMED [Concomitant]
     Indication: PRODUCT USED FOR UNKNOWN INDICATION
  4. PLAVIX [Concomitant]
     Active Substance: CLOPIDOGREL BISULFATE
     Indication: PRODUCT USED FOR UNKNOWN INDICATION
  5. DUODOPA [Suspect]
     Active Substance: CARBIDOPA\LEVODOPA
     Dosage: MD= 3.0 ML, CD= 1.6 ML/HR DURING 16HRS, ED= 1.5 ML, ND= 1.0 ML/HR DURING 8HRS
     Route: 050
     Dates: start: 20191212
  6. SODIUM HYALURONATE [Concomitant]
     Active Substance: HYALURONATE SODIUM
     Indication: PRODUCT USED FOR UNKNOWN INDICATION
     Dosage: UNIT DOSE: 1 DROP IN EACH EYE
  7. SERENASE [Concomitant]
     Indication: PRODUCT USED FOR UNKNOWN INDICATION
  8. TRAFLOXAL [Concomitant]
     Active Substance: OFLOXACIN
     Indication: PRODUCT USED FOR UNKNOWN INDICATION
     Dosage: UNIT DOSE: 1 DROP IN EACH EYE
  9. DUODOPA [Suspect]
     Active Substance: CARBIDOPA\LEVODOPA
     Indication: PARKINSON^S DISEASE
     Dosage: UNKNOWN DOSAGES
     Route: 050
     Dates: start: 20170821, end: 20190625
  10. DUODOPA [Suspect]
     Active Substance: CARBIDOPA\LEVODOPA
     Dosage: MD= 3.0 ML, CD= 1.8 ML/HR DURING 16HRS, ED= 1.5 ML, ND= 1.2 ML/HR DURING 8HRS
     Route: 050
     Dates: start: 20190625, end: 20191212
  11. RIOPAN [Concomitant]
     Indication: PRODUCT USED FOR UNKNOWN INDICATION

REACTIONS (2)
  - Wrist fracture [Unknown]
  - Fall [Recovered/Resolved]
